FAERS Safety Report 16134904 (Version 1)
Quarter: 2019Q1

REPORT INFORMATION
  Report Type: Spontaneous
  Country: DE (occurrence: DE)
  Receive Date: 20190329
  Receipt Date: 20190329
  Transmission Date: 20190418
  Serious: Yes (Hospitalization)
  Sender: FDA-Public Use
  Company Number: DE-MYLANLABS-2019M1027797

PATIENT
  Sex: Male

DRUGS (2)
  1. EPINEPHRINE. [Suspect]
     Active Substance: EPINEPHRINE
     Indication: PRODUCT USED FOR UNKNOWN INDICATION
     Dosage: UNK
  2. ARTICAINE HYDROCHLORIDE [Suspect]
     Active Substance: ARTICAINE HYDROCHLORIDE
     Indication: PRODUCT USED FOR UNKNOWN INDICATION
     Dosage: UNK

REACTIONS (3)
  - Blood pressure increased [Recovered/Resolved]
  - Anaesthetic complication [Recovered/Resolved]
  - Hyperventilation [Recovered/Resolved]
